FAERS Safety Report 21680773 (Version 1)
Quarter: 2022Q4

REPORT INFORMATION
  Report Type: Report from Study
  Country: US (occurrence: US)
  Receive Date: 20221205
  Receipt Date: 20221205
  Transmission Date: 20230113
  Serious: No
  Sender: FDA-Public Use
  Company Number: US-ABBVIE-4222824

PATIENT
  Sex: Female

DRUGS (1)
  1. IMBRUVICA [Suspect]
     Active Substance: IBRUTINIB
     Indication: Chronic lymphocytic leukaemia
     Route: 048
     Dates: start: 202207

REACTIONS (6)
  - Depression [Unknown]
  - Constipation [Unknown]
  - Anxiety [Unknown]
  - Skin ulcer [Unknown]
  - Loss of personal independence in daily activities [Unknown]
  - White blood cell count decreased [Unknown]
